FAERS Safety Report 17369861 (Version 1)
Quarter: 2020Q1

REPORT INFORMATION
  Report Type: Spontaneous
  Country: ES (occurrence: ES)
  Receive Date: 20200205
  Receipt Date: 20200205
  Transmission Date: 20200409
  Serious: Yes (Other)
  Sender: FDA-Public Use
  Company Number: ES-ROCHE-2538048

PATIENT
  Age: 17 Year
  Sex: Female

DRUGS (1)
  1. RANIBIZUMAB. [Suspect]
     Active Substance: RANIBIZUMAB
     Indication: EXUDATIVE RETINOPATHY
     Route: 031

REACTIONS (3)
  - Off label use [Unknown]
  - Retinal thickening [Recovered/Resolved]
  - Product use in unapproved indication [Unknown]
